FAERS Safety Report 12574522 (Version 3)
Quarter: 2016Q3

REPORT INFORMATION
  Report Type: Spontaneous
  Country: US (occurrence: US)
  Receive Date: 20160720
  Receipt Date: 20160913
  Transmission Date: 20161109
  Serious: Yes (Hospitalization, Other)
  Sender: FDA-Public Use
  Company Number: US-GLAXOSMITHKLINE-US2016102834

PATIENT
  Age: 71 Year
  Sex: Female
  Weight: 53.52 kg

DRUGS (4)
  1. ADVAIR DISKUS [Suspect]
     Active Substance: FLUTICASONE PROPIONATE\SALMETEROL XINAFOATE
     Dosage: UNK
  2. SPIRIVA [Concomitant]
     Active Substance: TIOTROPIUM BROMIDE MONOHYDRATE
  3. ADVAIR DISKUS [Suspect]
     Active Substance: FLUTICASONE PROPIONATE\SALMETEROL XINAFOATE
     Indication: CHRONIC RESPIRATORY FAILURE
     Dosage: 250/50 UG
     Route: 055
     Dates: start: 20140226, end: 20140325
  4. ADVAIR DISKUS [Suspect]
     Active Substance: FLUTICASONE PROPIONATE\SALMETEROL XINAFOATE
     Indication: CHRONIC OBSTRUCTIVE PULMONARY DISEASE
     Dosage: 500/50 UG, BID
     Dates: start: 20140325, end: 20160523

REACTIONS (15)
  - Moraxella test positive [Unknown]
  - Tachypnoea [Unknown]
  - Hypernatraemia [Recovered/Resolved]
  - Respiratory failure [Unknown]
  - Gait disturbance [Not Recovered/Not Resolved]
  - White blood cell count increased [Recovering/Resolving]
  - Oesophagitis [Unknown]
  - Nasopharyngitis [Recovering/Resolving]
  - Chronic obstructive pulmonary disease [Unknown]
  - Hypertension [Unknown]
  - Malaise [Recovering/Resolving]
  - Pneumonia [Recovering/Resolving]
  - Hypoxia [Recovering/Resolving]
  - Anxiety [Unknown]
  - Dyspnoea [Recovering/Resolving]

NARRATIVE: CASE EVENT DATE: 201512
